FAERS Safety Report 4828537-1 (Version None)
Quarter: 2005Q4

REPORT INFORMATION
  Report Type: 
  Country: None (occurrence: None)
  Receive Date: 20051110
  Receipt Date: 20051025
  Transmission Date: 20060501
  Serious: Yes (Other)
  Sender: FDA-Public Use
  Company Number: US156811

PATIENT
  Age: 60 Year
  Sex: Female

DRUGS (1)
  1. ENBREL [Suspect]
     Indication: DRUG USE FOR UNKNOWN INDICATION
     Dosage: ----

REACTIONS (5)
  - ABSCESS [None]
  - CEREBRAL DISORDER [None]
  - ENCEPHALITIS [None]
  - LISTERIOSIS [None]
  - SIMPLE PARTIAL SEIZURES [None]
